FAERS Safety Report 4621449-8 (Version None)
Quarter: 2005Q2

REPORT INFORMATION
  Report Type: 
  Country: None (occurrence: None)
  Receive Date: 20050315
  Receipt Date: 20040308
  Transmission Date: 20051028
  Serious: Yes (Hospitalization, Other)
  Sender: FDA-Public Use
  Company Number: HQWYE682910MAR04

PATIENT
  Age: 28 Year
  Sex: Female
  Weight: 56.75 kg

DRUGS (1)
  1. LO/OVRAL [Suspect]
     Indication: CONTRACEPTION
     Dosage: TABLET DAILY, ORAL
     Route: 048
     Dates: start: 20020901, end: 20030501

REACTIONS (3)
  - BACK PAIN [None]
  - PAIN IN EXTREMITY [None]
  - THROMBOSIS [None]
